FAERS Safety Report 8822098 (Version 2)
Quarter: 2013Q1

REPORT INFORMATION
  Report Type: Spontaneous
  Country: US (occurrence: US)
  Receive Date: 20121003
  Receipt Date: 20130311
  Transmission Date: 20140127
  Serious: Yes (Other)
  Sender: FDA-Public Use
  Company Number: US-BAYER-2012-101520

PATIENT
  Age: 32 Year
  Sex: Female
  Weight: 117.91 kg

DRUGS (6)
  1. YASMIN [Suspect]
     Indication: CONTRACEPTION
     Dosage: UNK
     Dates: start: 200404, end: 2008
  2. PROTONIX [Concomitant]
     Indication: GASTROOESOPHAGEAL REFLUX DISEASE
     Dosage: 40 MG, QD
     Route: 048
  3. WELLBUTRIN XL [Concomitant]
     Indication: DEPRESSION
     Dosage: 300 MG, QD
     Route: 048
  4. ORAL CONTRACEPTIVE NOS [Concomitant]
  5. IUD NOS [Concomitant]
  6. NSAID^S [Concomitant]
     Dosage: UNK UNK, PRN

REACTIONS (4)
  - Biliary dyskinesia [None]
  - Abdominal pain [None]
  - Pain [None]
  - Injury [None]
